FAERS Safety Report 7380378-X (Version None)
Quarter: 2011Q1

REPORT INFORMATION
  Report Type: 
  Country: None (occurrence: None)
  Receive Date: 20110324
  Receipt Date: 20110324
  Transmission Date: 20110831
  Serious: Yes (Other)
  Sender: FDA-Public Use
  Company Number: None

PATIENT
  Age: 32 Year
  Sex: Female

DRUGS (1)
  1. OXYTOCIN [Suspect]
     Dosage: IV DRIP
     Route: 041

REACTIONS (4)
  - PRODUCT QUALITY ISSUE [None]
  - RASH [None]
  - HEADACHE [None]
  - FLUSHING [None]
